FAERS Safety Report 4550396-5 (Version None)
Quarter: 2004Q4

REPORT INFORMATION
  Report Type: 
  Country: None (occurrence: None)
  Receive Date: 20041227
  Receipt Date: 20041105
  Transmission Date: 20050328
  Serious: No
  Sender: FDA-Public Use
  Company Number: 03P-163-0233646-00

PATIENT
  Age: 63 Year
  Sex: Female

DRUGS (10)
  1. HUMIRA [Suspect]
     Indication: RHEUMATOID ARTHRITIS
     Dosage: 40 MG, 1 IN 2 WK, SUBCUTANEOUS
     Route: 058
     Dates: start: 20030911
  2. HUMIRA [Suspect]
     Indication: RHEUMATOID ARTHRITIS
     Dosage: 40 MG, 1 IN 2 WK, SUBCUTANEOUS
     Route: 058
     Dates: start: 20040401
  3. METHOTREXATE [Concomitant]
  4. BUCINDOLOL  HYDROCHLORIDE [Concomitant]
  5. FELODIPINE [Concomitant]
  6. FUROSEMIDE [Concomitant]
  7. ESTROGENS  CONJUGATED [Concomitant]
  8. BUPROPION HYDROCHLORIDE [Concomitant]
  9. ASPIRIN [Concomitant]
  10. CALCIUM GLUCONATE [Concomitant]

REACTIONS (1)
  - INJECTION SITE BURNING [None]
